FAERS Safety Report 21246170 (Version 3)
Quarter: 2022Q3

REPORT INFORMATION
  Report Type: Report from Study
  Country: CA (occurrence: CA)
  Receive Date: 20220824
  Receipt Date: 20220920
  Transmission Date: 20221026
  Serious: Yes (Other)
  Sender: FDA-Public Use
  Company Number: CA-JNJFOC-20211148369

PATIENT
  Age: 31 Year
  Sex: Female
  Weight: 56 kg

DRUGS (4)
  1. REMICADE [Suspect]
     Active Substance: INFLIXIMAB
     Indication: Crohn^s disease
     Dosage: LAST DOSE ON 12-SEP-2022
     Route: 042
     Dates: start: 20201117
  2. REMICADE [Suspect]
     Active Substance: INFLIXIMAB
     Dosage: DOCTOR REQUESTED DOSE EVERY 4 WEEK FOR 8 TIMES THAN EVERY 6 WEEK. RECEIVED LAST INFUSION ON 20-JUN-2
     Route: 042
  3. REMICADE [Suspect]
     Active Substance: INFLIXIMAB
     Dosage: 5MG/KG?EXPIRY DATE- 31-JAN-2025
     Route: 042
  4. PERTUSSIS VACCINE [Concomitant]
     Active Substance: PERTUSSIS VACCINE
     Indication: Prophylaxis
     Dosage: RECEIVED PERTUSSIS BOOSTER SHOT.
     Route: 065
     Dates: start: 202208

REACTIONS (16)
  - Streptococcal urinary tract infection [Unknown]
  - Bronchitis [Recovering/Resolving]
  - Infusion related reaction [Recovered/Resolved]
  - Vaginal infection [Recovering/Resolving]
  - Muscle spasms [Unknown]
  - Illness [Not Recovered/Not Resolved]
  - COVID-19 [Recovering/Resolving]
  - Burning sensation [Recovered/Resolved]
  - Faeces soft [Unknown]
  - Infusion site pain [Recovered/Resolved]
  - Faeces hard [Unknown]
  - Frequent bowel movements [Not Recovered/Not Resolved]
  - Diarrhoea [Not Recovered/Not Resolved]
  - Oedema peripheral [Unknown]
  - Exposure during pregnancy [Not Recovered/Not Resolved]
  - Inappropriate schedule of product administration [Unknown]

NARRATIVE: CASE EVENT DATE: 20220101
